FAERS Safety Report 5327464-3 (Version None)
Quarter: 2007Q2

REPORT INFORMATION
  Report Type: 
  Country: None (occurrence: None)
  Receive Date: 20070517
  Receipt Date: 20070129
  Transmission Date: 20071010
  Serious: Yes (Hospitalization)
  Sender: FDA-Public Use
  Company Number: US-JNJFOC-20070104873

PATIENT
  Age: 40 Year
  Sex: Female

DRUGS (4)
  1. TRAMADOL HCL [Suspect]
     Indication: INTENTIONAL DRUG MISUSE
     Route: 065
  2. ANTICONVULSANT [Suspect]
     Indication: OVERDOSE
     Route: 048
  3. ATYPICAL ANTIPSYCHOTIC [Suspect]
     Indication: INTENTIONAL DRUG MISUSE
     Route: 065
  4. DIPHENHYDRAMINE HCL [Suspect]
     Indication: INTENTIONAL DRUG MISUSE
     Route: 065

REACTIONS (4)
  - DEHYDRATION [None]
  - DEPRESSED LEVEL OF CONSCIOUSNESS [None]
  - MULTIPLE DRUG OVERDOSE [None]
  - TACHYCARDIA [None]
